FAERS Safety Report 11337741 (Version 1)
Quarter: 2015Q3

REPORT INFORMATION
  Report Type: Spontaneous
  Country: US (occurrence: US)
  Receive Date: 20150803
  Receipt Date: 20150803
  Transmission Date: 20151125
  Serious: Yes (Other)
  Sender: FDA-Public Use
  Company Number: US-ELI_LILLY_AND_COMPANY-US200911002865

PATIENT
  Weight: 83.9 kg

DRUGS (3)
  1. LAMICTAL [Concomitant]
     Active Substance: LAMOTRIGINE
     Dosage: 300 MG, DAILY (1/D)
     Route: 065
  2. CLONAZEPAN [Concomitant]
     Active Substance: CLONAZEPAM
     Dosage: 10 MG, AS NEEDED
     Route: 065
  3. ZYPREXA [Suspect]
     Active Substance: OLANZAPINE
     Indication: BIPOLAR DISORDER
     Dosage: UNK, DAILY (1/D)
     Route: 065
     Dates: start: 200209, end: 200401

REACTIONS (3)
  - Weight increased [Unknown]
  - Blood triglycerides increased [Not Recovered/Not Resolved]
  - Blood cholesterol increased [Unknown]
